FAERS Safety Report 15371439 (Version 2)
Quarter: 2018Q3

REPORT INFORMATION
  Report Type: Spontaneous
  Country: US (occurrence: US)
  Receive Date: 20180911
  Receipt Date: 20180913
  Transmission Date: 20181010
  Serious: Yes (Hospitalization)
  Sender: FDA-Public Use
  Company Number: US-PFIZER INC-2018366126

PATIENT
  Age: 53 Year
  Sex: Female
  Weight: 67 kg

DRUGS (2)
  1. LYRICA [Suspect]
     Active Substance: PREGABALIN
     Dosage: 150 MG, UNK (90 CAPSULES)
  2. LYRICA [Suspect]
     Active Substance: PREGABALIN
     Indication: FIBROMYALGIA
     Dosage: 200 MG, 3X/DAY
     Route: 048

REACTIONS (4)
  - Prescribed overdose [Unknown]
  - Influenza [Recovered/Resolved]
  - Memory impairment [Recovered/Resolved]
  - Drug dispensing error [Unknown]

NARRATIVE: CASE EVENT DATE: 2018
